FAERS Safety Report 24755505 (Version 2)
Quarter: 2024Q4

REPORT INFORMATION
  Report Type: Spontaneous
  Country: US (occurrence: US)
  Receive Date: 20241219
  Receipt Date: 20241231
  Transmission Date: 20250114
  Serious: No
  Sender: SANOFI AVENTIS
  Company Number: US-SA-2024SA372858

PATIENT
  Sex: Female

DRUGS (1)
  1. LIXISENATIDE [Suspect]
     Active Substance: LIXISENATIDE
     Indication: Dermatitis atopic
     Dosage: 300 MG/KG, QOW
     Route: 058

REACTIONS (1)
  - Off label use [Unknown]
